FAERS Safety Report 7744485-1 (Version None)
Quarter: 2011Q3

REPORT INFORMATION
  Report Type: 
  Country: None (occurrence: None)
  Receive Date: 20110826
  Receipt Date: 20110819
  Transmission Date: 20111222
  Serious: Yes (Hospitalization)
  Sender: FDA-Public Use
  Company Number: 2011SP039850

PATIENT
  Age: 76 Year
  Sex: Male

DRUGS (5)
  1. AMLODIPINE [Concomitant]
  2. MIRTAZAPINE [Suspect]
     Indication: PRODUCT USED FOR UNKNOWN INDICATION
     Dosage: 15 MG ; 45 MG ; 60 MG ; 30 MG
     Dates: start: 20050101
  3. VALSARTAN [Concomitant]
  4. VENLAFAXINE [Suspect]
     Indication: PRODUCT USED FOR UNKNOWN INDICATION
     Dosage: 75 MG
  5. BENDROFLUAZIDE (BENDROFLUAZIDE) [Suspect]
     Indication: HYPERTENSION

REACTIONS (4)
  - BLOOD SODIUM DECREASED [None]
  - HEAD INJURY [None]
  - URINARY HESITATION [None]
  - FALL [None]
